FAERS Safety Report 25772826 (Version 1)
Quarter: 2025Q3

REPORT INFORMATION
  Report Type: Spontaneous
  Country: US (occurrence: None)
  Receive Date: 20250906
  Receipt Date: 20250906
  Transmission Date: 20251021
  Serious: Yes (unspecified)
  Sender: FDA-CTU
  Company Number: None

PATIENT
  Age: 22 Year
  Sex: Female
  Weight: 83.25 kg

DRUGS (1)
  1. DUPIXENT [Suspect]
     Active Substance: DUPILUMAB
     Indication: Eczema
     Dates: start: 20241001, end: 20250701

REACTIONS (8)
  - Arthralgia [None]
  - Joint swelling [None]
  - Heart rate increased [None]
  - Pleuritic pain [None]
  - Vision blurred [None]
  - Photopsia [None]
  - Eye inflammation [None]
  - Ocular hyperaemia [None]
